FAERS Safety Report 9092781 (Version 1)
Quarter: 2013Q1

REPORT INFORMATION
  Report Type: Spontaneous
  Country: US (occurrence: US)
  Receive Date: 20130201
  Receipt Date: 20130201
  Transmission Date: 20140127
  Serious: No
  Sender: FDA-Public Use
  Company Number: US-BAYER-2013-010736

PATIENT
  Age: 66 Year
  Sex: Male
  Weight: 70.3 kg

DRUGS (8)
  1. ALEVE CAPLET/TABLET,MIDOL EXTENDED RELIEF CAPLET [Suspect]
     Indication: PAIN
     Dosage: 1 DF, QD
     Route: 048
     Dates: start: 20130108
  2. BAYER ASPIRIN REGIMEN ADULT LOW STRENGTH [Suspect]
     Indication: ISCHAEMIC HEART DISEASE PROPHYLAXIS
     Dosage: 1 DF, QD
     Route: 048
     Dates: start: 200811
  3. LISINOPRIL [Concomitant]
  4. OXYCODONE [Concomitant]
  5. METFORMIN [Concomitant]
  6. VICTOZA [Concomitant]
  7. GLIMEPIRIDE [Concomitant]
  8. LOVASTATIN [Concomitant]

REACTIONS (2)
  - Rash [Not Recovered/Not Resolved]
  - Rash pruritic [Not Recovered/Not Resolved]
